FAERS Safety Report 4423320-3 (Version None)
Quarter: 2004Q3

REPORT INFORMATION
  Report Type: 
  Country: None (occurrence: None)
  Receive Date: 20040811
  Receipt Date: 20040810
  Transmission Date: 20050211
  Serious: Yes (Hospitalization)
  Sender: FDA-Public Use
  Company Number: FR-GLAXOSMITHKLINE-B0341974A

PATIENT
  Age: 35 Year
  Sex: Male
  Weight: 90 kg

DRUGS (3)
  1. ZOVIRAX [Suspect]
     Indication: MENINGITIS
     Dosage: 300MG PER DAY
     Route: 042
     Dates: start: 20040625, end: 20040701
  2. CLAFORAN [Suspect]
     Indication: MENINGITIS
     Route: 042
     Dates: start: 20040625, end: 20040628
  3. VANCOMYCIN [Suspect]
     Indication: MENINGITIS
     Dosage: 2G PER DAY
     Route: 042
     Dates: start: 20040625, end: 20040628

REACTIONS (2)
  - DRUG INTERACTION [None]
  - RENAL FAILURE ACUTE [None]
